FAERS Safety Report 10257936 (Version 1)
Quarter: 2014Q2

REPORT INFORMATION
  Report Type: Spontaneous
  Country: US (occurrence: US)
  Receive Date: 20140625
  Receipt Date: 20140625
  Transmission Date: 20141212
  Serious: Yes (Other)
  Sender: FDA-Public Use
  Company Number: US-SA-2014SA079784

PATIENT
  Sex: Female

DRUGS (4)
  1. LANTUS [Suspect]
     Indication: PRODUCT USED FOR UNKNOWN INDICATION
     Route: 065
  2. LEVEMIR [Concomitant]
  3. NOVORAPID [Concomitant]
  4. APIDRA [Concomitant]

REACTIONS (5)
  - Anaphylactic reaction [Unknown]
  - Seasonal allergy [Unknown]
  - Night sweats [Unknown]
  - Headache [Unknown]
  - Hypoglycaemia [Unknown]
